FAERS Safety Report 23370998 (Version 2)
Quarter: 2024Q1

REPORT INFORMATION
  Report Type: Spontaneous
  Country: TR (occurrence: TR)
  Receive Date: 20240105
  Receipt Date: 20240318
  Transmission Date: 20240410
  Serious: Yes (Other)
  Sender: FDA-Public Use
  Company Number: TR-TEVA-VS-3138008

PATIENT
  Age: 14 Year
  Sex: Female

DRUGS (3)
  1. RISPERIDONE [Suspect]
     Active Substance: RISPERIDONE
     Indication: Schizophrenia
     Route: 065
  2. RISPERIDONE [Suspect]
     Active Substance: RISPERIDONE
     Indication: Schizophrenia
     Dosage: RECEIVED IN DIVIDED DOSES
     Route: 065
  3. BIPERIDEN [Concomitant]
     Active Substance: BIPERIDEN
     Indication: Schizophrenia
     Route: 065

REACTIONS (6)
  - Sedation [Unknown]
  - Menstruation irregular [Recovered/Resolved]
  - Cognitive disorder [Unknown]
  - Hyperprolactinaemia [Unknown]
  - Increased appetite [Unknown]
  - Galactorrhoea [Recovered/Resolved]
